FAERS Safety Report 5341036-6 (Version None)
Quarter: 2007Q2

REPORT INFORMATION
  Report Type: 
  Country: None (occurrence: None)
  Receive Date: 20070405
  Receipt Date: 20070125
  Transmission Date: 20071010
  Serious: No
  Sender: FDA-Public Use
  Company Number: US200701005339

PATIENT
  Sex: Male

DRUGS (4)
  1. CYMBALTA [Suspect]
     Indication: DEPRESSION
     Dosage: 60 MG, ORAL
     Route: 048
     Dates: start: 20070101
  2. MACALT/NET/ (RIZATRIPTAN) [Concomitant]
  3. LEXAPRO [Concomitant]
  4. TRAMADOL HCL [Concomitant]

REACTIONS (1)
  - TINNITUS [None]
